FAERS Safety Report 25670087 (Version 1)
Quarter: 2025Q3

REPORT INFORMATION
  Report Type: Spontaneous
  Country: US (occurrence: US)
  Receive Date: 20250812
  Receipt Date: 20250812
  Transmission Date: 20251020
  Serious: Yes (Hospitalization)
  Sender: ACCORD
  Company Number: US-Accord-499466

PATIENT
  Age: 35 Year

DRUGS (31)
  1. CLOZAPINE [Interacting]
     Active Substance: CLOZAPINE
     Indication: Schizophrenia
     Dosage: FOUR YEARS DURING WHICH DOSE WAS TITRATED TO 900 MG DAILY
  2. RIFAMPIN [Interacting]
     Active Substance: RIFAMPIN
     Indication: Pulmonary tuberculosis
     Dosage: 15, 19, 20, 30, DAY OF HOSPITALIZATION, 1, 2, 5, 15, 19, 29, 47, 93 DAYS AFTER HOSPITALIZATION
  3. ARIPIPRAZOLE [Concomitant]
     Active Substance: ARIPIPRAZOLE
     Indication: Hallucination, auditory
     Dosage: 17 DAYS BEFORE OF HOSPITALIZATION
  4. ETHAMBUTOL [Concomitant]
     Active Substance: ETHAMBUTOL HYDROCHLORIDE
     Indication: Pulmonary tuberculosis
     Dosage: 15, 19, 20, 30, DAY OF HOSPITALIZATION
  5. ISONIAZID [Concomitant]
     Active Substance: ISONIAZID
     Indication: Pulmonary tuberculosis
     Dosage: 15, 19, 20, 30, DAY OF HOSPITALIZATION, 1, 2, 5, 15, 19, 29, 47, 93 DAYS AFTER HOSPITALIZATION
  6. PYRAZINAMIDE [Concomitant]
     Active Substance: PYRAZINAMIDE
     Indication: Pulmonary tuberculosis
     Dosage: 15, 19, 20, 30, DAY OF HOSPITALIZATION
  7. CLOZAPINE [Interacting]
     Active Substance: CLOZAPINE
     Indication: Schizophrenia
     Dosage: 2 DAYS AFTER HOSPITALIZATION
  8. CLOZAPINE [Interacting]
     Active Substance: CLOZAPINE
     Indication: Psychotic symptom
     Dosage: DOSE WAS DECREASED FROM 900 MG NIGHTLY TO 800 MG NIGHTLY.
  9. CLOZAPINE [Interacting]
     Active Substance: CLOZAPINE
     Indication: Psychotic symptom
     Dosage: DECREASED BY NEARLY 20% FROM 800 MG NIGHTLY TO 650 MG NIGHTLY
  10. CLOZAPINE [Interacting]
     Active Substance: CLOZAPINE
     Indication: Psychotic symptom
     Dosage: 19 DAY OF HOSPITALIZATION
  11. CLOZAPINE [Interacting]
     Active Substance: CLOZAPINE
     Indication: Psychotic symptom
     Dosage: INCREASED BY 25 MG DAILY TO 750 MG NIGHTLY. 20, 30 DAY OF HOSPITALIZATION
  12. CLOZAPINE [Interacting]
     Active Substance: CLOZAPINE
     Indication: Psychotic symptom
     Dosage: 1 DAY AFTER HOSPITALIZATION
  13. CLOZAPINE [Interacting]
     Active Substance: CLOZAPINE
     Indication: Psychotic symptom
     Dosage: 2 DAYS AFTER HOSPITALIZATION
  14. CLOZAPINE [Interacting]
     Active Substance: CLOZAPINE
     Indication: Psychotic symptom
     Dosage: 5 DAYS AFTER HOSPITALIZATION
  15. CLOZAPINE [Interacting]
     Active Substance: CLOZAPINE
     Indication: Psychotic symptom
     Dosage: 15, 19, 29, 47 DAYS AFTER HOSPITALIZATION
  16. CLOZAPINE [Interacting]
     Active Substance: CLOZAPINE
     Indication: Psychotic symptom
     Dosage: OVER THE FOLLOWING 6 MONTHS, THEIR CLOZAPINE DOSE WAS ADJUSTED TO 950 MG NIGHTLY
  17. PYRAZINAMIDE [Concomitant]
     Active Substance: PYRAZINAMIDE
     Indication: Pulmonary tuberculosis
     Dosage: DOSE INCREASED
  18. ETHAMBUTOL [Concomitant]
     Active Substance: ETHAMBUTOL HYDROCHLORIDE
     Indication: Pulmonary tuberculosis
     Dosage: DOSE INCREASED
  19. CLOZAPINE [Interacting]
     Active Substance: CLOZAPINE
     Indication: Schizophrenia
     Dosage: DOSE WAS DECREASED FROM 900 MG NIGHTLY TO 800 MG NIGHTLY.
  20. CLOZAPINE [Interacting]
     Active Substance: CLOZAPINE
     Indication: Schizophrenia
     Dosage: DECREASED BY NEARLY 20% FROM 800 MG NIGHTLY TO 650 MG NIGHTLY.
  21. CLOZAPINE [Interacting]
     Active Substance: CLOZAPINE
     Indication: Schizophrenia
     Dosage: 19 DAY OF HOSPITALIZATION
  22. CLOZAPINE [Interacting]
     Active Substance: CLOZAPINE
     Indication: Schizophrenia
     Dosage: IN ANTICIPATION OF CYP450 ENZYME INDUCTION BY RIFAMPICIN
  23. CLOZAPINE [Interacting]
     Active Substance: CLOZAPINE
     Indication: Schizophrenia
     Dosage: 1 DAY AFTER HOSPITALIZATION
  24. CLOZAPINE [Interacting]
     Active Substance: CLOZAPINE
     Indication: Schizophrenia
     Dosage: 5 DAYS AFTER HOSPITALIZATION
  25. CLOZAPINE [Interacting]
     Active Substance: CLOZAPINE
     Indication: Schizophrenia
     Dosage: 15, 19, 29, 47 DAYS AFTER HOSPITALIZATION
  26. CLOZAPINE [Interacting]
     Active Substance: CLOZAPINE
     Indication: Schizophrenia
     Dosage: OVER THE FOLLOWING 6 MONTHS, THEIR CLOZAPINE DOSE
  27. CLOZAPINE [Interacting]
     Active Substance: CLOZAPINE
     Indication: Psychotic symptom
     Dosage: FOUR YEARS DURING WHICH DOSE WAS TITRATED TO 900 MG DAILY
  28. ARIPIPRAZOLE [Concomitant]
     Active Substance: ARIPIPRAZOLE
     Indication: Hallucination, auditory
     Dosage: 6, 15, 19, 20 DAY OF HOSPITALIZATION
  29. ARIPIPRAZOLE [Concomitant]
     Active Substance: ARIPIPRAZOLE
     Indication: Hallucination, auditory
     Dosage: 30 DAY OF HOSPITALIZATION, 1, 2, 5, 15 DAYS AFTER HOSPITALIZATION
  30. ARIPIPRAZOLE [Concomitant]
     Active Substance: ARIPIPRAZOLE
     Indication: Hallucination, auditory
     Dosage: 19, 29, 47, 93, 164, 180 DAYS AFTER HOSPITALIZATION, 1.5 YEARS AFTER HOSPITALIZATION
  31. ARIPIPRAZOLE [Concomitant]
     Active Substance: ARIPIPRAZOLE
     Indication: Delusion
     Dosage: 17 DAYS BEFORE OF HOSPITALIZATION

REACTIONS (4)
  - Drug interaction [Unknown]
  - Antipsychotic drug level decreased [Recovering/Resolving]
  - Psychiatric symptom [Unknown]
  - Condition aggravated [Unknown]
